FAERS Safety Report 6460845-3 (Version None)
Quarter: 2009Q4

REPORT INFORMATION
  Report Type: 
  Country: None (occurrence: None)
  Receive Date: 20091130
  Receipt Date: 20091117
  Transmission Date: 20100525
  Serious: Yes (Hospitalization)
  Sender: FDA-Public Use
  Company Number: JP-PFIZER INC-2009294150

PATIENT
  Age: 70 Year
  Sex: Male

DRUGS (6)
  1. SUNITINIB MALATE [Suspect]
     Indication: RENAL CELL CARCINOMA
     Dosage: 37.5 MG, 1X/DAY
     Dates: start: 20090827
  2. NORVASC [Concomitant]
     Dosage: UNK
     Route: 048
  3. CANDESARTAN CILEXETIL [Concomitant]
     Route: 048
     Dates: start: 20090904, end: 20090907
  4. LOXONIN [Concomitant]
     Route: 048
     Dates: start: 20090905, end: 20091001
  5. SELBEX [Concomitant]
     Route: 048
     Dates: start: 20090905, end: 20090908
  6. AZUNOL [Concomitant]
     Route: 048
     Dates: start: 20090906, end: 20090909

REACTIONS (1)
  - LACUNAR INFARCTION [None]
